FAERS Safety Report 16279600 (Version 1)
Quarter: 2019Q2

REPORT INFORMATION
  Report Type: Spontaneous
  Country: JP (occurrence: JP)
  Receive Date: 20190507
  Receipt Date: 20190507
  Transmission Date: 20190711
  Serious: Yes (Other)
  Sender: FDA-Public Use
  Company Number: JP-TEVA-2018-JP-993395

PATIENT
  Age: 8 Year
  Sex: Female

DRUGS (2)
  1. CELECOXIB. [Concomitant]
     Active Substance: CELECOXIB
     Indication: LANGERHANS^ CELL HISTIOCYTOSIS
     Route: 065
  2. ZOLEDRONATE [Suspect]
     Active Substance: ZOLEDRONIC ACID
     Indication: LANGERHANS^ CELL HISTIOCYTOSIS
     Dosage: 60 MINUTES INFUSION EVERY 4 WEEKS
     Route: 042

REACTIONS (6)
  - Hypophosphataemia [Unknown]
  - Nausea [Recovered/Resolved]
  - C-reactive protein increased [Unknown]
  - Vomiting [Recovered/Resolved]
  - Hypocalcaemia [Unknown]
  - Pyrexia [Recovered/Resolved]
